FAERS Safety Report 8775630 (Version 3)
Quarter: 2013Q3

REPORT INFORMATION
  Report Type: Spontaneous
  Country: JP (occurrence: JP)
  Receive Date: 20120910
  Receipt Date: 20130930
  Transmission Date: 20140515
  Serious: Yes (Other)
  Sender: FDA-Public Use
  Company Number: JP-MERCK-1209JPN002029

PATIENT
  Age: 42 Year
  Sex: Male
  Weight: 178 kg

DRUGS (5)
  1. BRIDION INTRAVENOUS 200MG [Suspect]
     Indication: NEUROMUSCULAR BLOCKADE REVERSAL
     Dosage: 800 MG, UNK
     Route: 042
     Dates: start: 20120904, end: 20120904
  2. SEVOFLURANE [Concomitant]
     Indication: GENERAL ANAESTHESIA
     Dosage: 1.5 UNK, UNK
     Route: 055
     Dates: start: 20120904
  3. REMIFENTANIL HYDROCHLORIDE [Concomitant]
     Indication: GENERAL ANAESTHESIA
     Dosage: 2 MG, 1 HOUR
     Route: 042
     Dates: start: 20120904
  4. FENTANYL [Concomitant]
     Indication: GENERAL ANAESTHESIA
     Dosage: 100 MG, UNK
     Route: 042
     Dates: start: 20120904
  5. ROCURONIUM BROMIDE [Concomitant]
     Indication: GENERAL ANAESTHESIA
     Dosage: 40 MG, UNK
     Route: 042
     Dates: start: 20120904

REACTIONS (1)
  - Bradycardia [Recovered/Resolved]
